FAERS Safety Report 6822309-4 (Version None)
Quarter: 2010Q3

REPORT INFORMATION
  Report Type: 
  Country: None (occurrence: None)
  Receive Date: 20100708
  Receipt Date: 20100607
  Transmission Date: 20110219
  Serious: No
  Sender: FDA-Public Use
  Company Number: US-BAYER-201016698BCC

PATIENT
  Age: 25 Year
  Sex: Male
  Weight: 84 kg

DRUGS (5)
  1. ALEVE [Suspect]
     Indication: PAIN
     Dosage: BOTTLE COUNT 80S
     Route: 048
     Dates: start: 20100201
  2. ALEVE [Suspect]
     Indication: PAIN
     Dosage: BOTTLE COUNT UNKNOWN
     Route: 048
     Dates: start: 20100201
  3. PROVENTIL GENTLEHALER [Concomitant]
     Route: 065
  4. GENERIC TESSALON PERLE [Concomitant]
     Indication: COUGH
     Route: 065
  5. AMOXICILLIN [Concomitant]
     Indication: COUGH
     Route: 065

REACTIONS (1)
  - PRURITUS GENERALISED [None]
